FAERS Safety Report 4479449-7 (Version None)
Quarter: 2004Q4

REPORT INFORMATION
  Report Type: 
  Country: None (occurrence: None)
  Receive Date: 20041015
  Receipt Date: 20041001
  Transmission Date: 20050328
  Serious: Yes (Death)
  Sender: FDA-Public Use
  Company Number: DSA_70417_2004

PATIENT
  Age: 47 Year

DRUGS (3)
  1. ACETAMINOPHEN W/ PROPOXYPHENE HCL [Suspect]
     Dosage: DF PO
     Route: 048
  2. ALPRAZOLAM [Suspect]
     Dosage: DF PO
     Route: 048
  3. ACETAMINOPHEN [Suspect]
     Dosage: DF PO
     Route: 048

REACTIONS (1)
  - MULTIPLE DRUG OVERDOSE INTENTIONAL [None]
